FAERS Safety Report 12972835 (Version 4)
Quarter: 2017Q1

REPORT INFORMATION
  Report Type: Spontaneous
  Country: US (occurrence: US)
  Receive Date: 20161124
  Receipt Date: 20170313
  Transmission Date: 20170428
  Serious: Yes (Hospitalization)
  Sender: FDA-Public Use
  Company Number: US-PFIZER INC-2016533975

PATIENT
  Age: 71 Year
  Sex: Female
  Weight: 81.63 kg

DRUGS (9)
  1. SUTENT [Suspect]
     Active Substance: SUNITINIB MALATE
     Indication: RENAL CANCER METASTATIC
     Dosage: 37.5 MG, CYCLIC, 28 DAYS ON/14 DAYS OFF
     Route: 048
     Dates: start: 20161112, end: 20161124
  2. SUTENT [Suspect]
     Active Substance: SUNITINIB MALATE
     Dosage: 30 MG, 1X/DAY
     Dates: start: 20161112
  3. LORTAB [Concomitant]
     Active Substance: ACETAMINOPHEN\HYDROCODONE BITARTRATE
     Dosage: UNK
     Dates: start: 201612
  4. HUMALOG [Concomitant]
     Active Substance: INSULIN LISPRO
     Dosage: 3X/DAY
  5. INSULIN [Concomitant]
     Active Substance: INSULIN NOS
     Dosage: UNK, 3X/DAY
  6. PRILOSEC [Concomitant]
     Active Substance: OMEPRAZOLE MAGNESIUM
     Dosage: UNK
     Dates: start: 20161201
  7. CALCIUM [Concomitant]
     Active Substance: CALCIUM
     Dosage: UNK
  8. VITAMIN D [Concomitant]
     Active Substance: CHOLECALCIFEROL
     Dosage: UNK
     Dates: start: 20160620
  9. AMBIEN [Concomitant]
     Active Substance: ZOLPIDEM TARTRATE
     Dosage: UNK

REACTIONS (11)
  - Malaise [Recovered/Resolved]
  - Incoherent [Unknown]
  - Gait disturbance [Unknown]
  - Skin exfoliation [Unknown]
  - Diarrhoea [Recovered/Resolved with Sequelae]
  - Stomatitis [Unknown]
  - Urinary tract infection [Recovered/Resolved]
  - Candida infection [Unknown]
  - Hypersensitivity [Unknown]
  - Retching [Unknown]
  - Dehydration [Unknown]

NARRATIVE: CASE EVENT DATE: 20161114
